FAERS Safety Report 5588418-5 (Version None)
Quarter: 2008Q1

REPORT INFORMATION
  Report Type: 
  Country: None (occurrence: None)
  Receive Date: 20080111
  Receipt Date: 20071210
  Transmission Date: 20080703
  Serious: No
  Sender: FDA-Public Use
  Company Number: A0698161A

PATIENT
  Age: 45 Year
  Sex: Female

DRUGS (9)
  1. TYKERB [Suspect]
     Indication: BREAST CANCER
     Dosage: 5TAB PER DAY
     Route: 048
  2. TAMOXIFEN [Concomitant]
  3. ASPIRIN [Concomitant]
  4. UNSPECIFIED MEDICATION [Concomitant]
  5. VITAMIN AND MINERAL PRENATAL SUPPLEMENT W/ FOLIC ACID CAP [Concomitant]
  6. BLACK COHOSH [Concomitant]
  7. OSCAL [Concomitant]
  8. VYTORIN [Concomitant]
  9. HERCEPTIN [Concomitant]

REACTIONS (2)
  - DIARRHOEA [None]
  - STOMACH DISCOMFORT [None]
